FAERS Safety Report 7036509-4 (Version None)
Quarter: 2010Q4

REPORT INFORMATION
  Report Type: 
  Country: None (occurrence: None)
  Receive Date: 20101011
  Receipt Date: 20100929
  Transmission Date: 20110411
  Serious: No
  Sender: FDA-Public Use
  Company Number: US-BIOGENIDEC-2010BI021995

PATIENT
  Age: 69 Year
  Sex: Female

DRUGS (1)
  1. TYSABRI [Suspect]
     Indication: MULTIPLE SCLEROSIS
     Route: 042
     Dates: start: 20070329

REACTIONS (6)
  - CONTUSION [None]
  - DRUG EFFECT DECREASED [None]
  - FALL [None]
  - HYPOACUSIS [None]
  - MUSCLE SPASMS [None]
  - SLUGGISHNESS [None]
